FAERS Safety Report 4999851-4 (Version None)
Quarter: 2006Q2

REPORT INFORMATION
  Report Type: 
  Country: None (occurrence: None)
  Receive Date: 20060509
  Receipt Date: 20060503
  Transmission Date: 20061013
  Serious: Yes (Disabling)
  Sender: FDA-Public Use
  Company Number: GRP06000046

PATIENT
  Age: 82 Year
  Sex: Female
  Weight: 70 kg

DRUGS (3)
  1. ACTONEL [Suspect]
     Indication: OSTEOPOROSIS
     Dosage: 70 MG, 1/WEEK, ORAL
     Route: 048
     Dates: start: 20050101
  2. MESTINON [Concomitant]
  3. CELLCEPT [Concomitant]

REACTIONS (3)
  - CONDITION AGGRAVATED [None]
  - MYASTHENIA GRAVIS [None]
  - UNEVALUABLE EVENT [None]
